FAERS Safety Report 9170140 (Version 1)
Quarter: 2013Q1

REPORT INFORMATION
  Report Type: Spontaneous
  Country: US (occurrence: None)
  Receive Date: 20130308
  Receipt Date: 20130308
  Transmission Date: 20140127
  Serious: Yes (Death)
  Sender: FDA-Public Use
  Company Number: SYM-2013-01395

PATIENT
  Age: 60 Year
  Sex: Female

DRUGS (12)
  1. XENAZINE [Suspect]
     Indication: PRODUCT USED FOR UNKNOWN INDICATION
     Route: 048
  2. RISPERIDONE [Concomitant]
  3. AMANTADINE [Concomitant]
  4. RANTIDINE [Concomitant]
  5. FLUOXETINE [Concomitant]
  6. CELEBREX (CELECOXIB) [Concomitant]
  7. PANTOPRAZOLE [Concomitant]
  8. FERROUS SULFATE [Concomitant]
  9. TAMOXIFEN [Concomitant]
  10. BENZTROPINE (BENZATROPINE MESILATE) [Concomitant]
  11. LIPITOR (ATORVASTATIN) [Concomitant]
  12. CLONAZEPAM [Concomitant]

REACTIONS (1)
  - Death [None]
